FAERS Safety Report 8016362-2 (Version None)
Quarter: 2011Q4

REPORT INFORMATION
  Report Type: 
  Country: None (occurrence: None)
  Receive Date: 20111230
  Receipt Date: 20111228
  Transmission Date: 20120403
  Serious: Yes (Death)
  Sender: FDA-Public Use
  Company Number: US-BRACCO-007334

PATIENT
  Age: 30 Year
  Sex: Female
  Weight: 98 kg

DRUGS (8)
  1. TOPAMAX [Concomitant]
     Dates: end: 20111227
  2. MULTIHANCE [Suspect]
     Indication: NUCLEAR MAGNETIC RESONANCE IMAGING BRAIN
     Route: 042
     Dates: start: 20111228, end: 20111228
  3. MULTIHANCE [Suspect]
     Indication: EYE OEDEMA
     Route: 042
     Dates: start: 20111228, end: 20111228
  4. MULTIHANCE [Suspect]
     Indication: OPTIC NEURITIS
     Route: 042
     Dates: start: 20111228, end: 20111228
  5. IBUPROFEN [Concomitant]
     Dosage: AS NEEDED (PRN) EVERY SIX HOURS
     Route: 048
  6. PRILOSEC [Concomitant]
     Dates: end: 20111228
  7. RECLIPSEN [Concomitant]
     Dosage: 0.15 MG-0.03 MG PO/DAY
     Route: 048
     Dates: end: 20111224
  8. VITAMIN D [Concomitant]
     Dates: end: 20111228

REACTIONS (4)
  - DEPRESSED LEVEL OF CONSCIOUSNESS [None]
  - HYPOTENSION [None]
  - THROAT IRRITATION [None]
  - FOAMING AT MOUTH [None]
